FAERS Safety Report 20446283 (Version 1)
Quarter: 2022Q1

REPORT INFORMATION
  Report Type: Report from Study
  Country: US (occurrence: US)
  Receive Date: 20220208
  Receipt Date: 20220208
  Transmission Date: 20220423
  Serious: Yes (Life-Threatening, Hospitalization)
  Sender: FDA-Public Use
  Company Number: US-MYLANLABS-2022M1010922

PATIENT
  Sex: Male

DRUGS (2)
  1. NALOXONE [Suspect]
     Active Substance: NALOXONE
     Indication: Reversal of opiate activity
     Dosage: 2 MILLIGRAM
     Route: 042
  2. NALOXONE [Suspect]
     Active Substance: NALOXONE
     Indication: Overdose

REACTIONS (2)
  - Acute respiratory failure [Recovered/Resolved]
  - Pulmonary oedema [Recovered/Resolved]
